FAERS Safety Report 21020401 (Version 1)
Quarter: 2022Q2

REPORT INFORMATION
  Report Type: Spontaneous
  Country: IT (occurrence: IT)
  Receive Date: 20220629
  Receipt Date: 20220629
  Transmission Date: 20220720
  Serious: Yes (Hospitalization)
  Sender: FDA-Public Use
  Company Number: IT-STRIDES ARCOLAB LIMITED-2022SP007790

PATIENT

DRUGS (6)
  1. OLANZAPINE [Interacting]
     Active Substance: OLANZAPINE
     Indication: Bipolar I disorder
     Dosage: 20 MILLIGRAM, UNKNOWN (DEFINED DAILY DOSE: 10MG)  (AP THERAPY)
     Route: 065
  2. HALOPERIDOL [Interacting]
     Active Substance: HALOPERIDOL
     Indication: Bipolar I disorder
     Dosage: 1.5 MILLIGRAM, UNKNOWN  (AP THERAPY)
     Route: 065
  3. LITHIUM CARBONATE [Interacting]
     Active Substance: LITHIUM CARBONATE
     Indication: Bipolar I disorder
     Dosage: 900 MILLIGRAM, UNKNOWN (AP THERAPY)
     Route: 065
  4. LORAZEPAM [Interacting]
     Active Substance: LORAZEPAM
     Indication: Bipolar I disorder
     Dosage: 3 MILLIGRAM, UNKNOWN  (AP THERAPY)
     Route: 065
  5. VALPROIC ACID [Concomitant]
     Active Substance: VALPROIC ACID
     Indication: Product used for unknown indication
     Dosage: 1000 MILLIGRAM, UNKNOWN
     Route: 065
  6. PROPRANOLOL [Concomitant]
     Active Substance: PROPRANOLOL HYDROCHLORIDE
     Indication: Product used for unknown indication
     Dosage: 30 MILLIGRAM, UNKNOWN
     Route: 065

REACTIONS (2)
  - Drug interaction [Unknown]
  - Sedation [Unknown]
